FAERS Safety Report 9083852 (Version 1)
Quarter: 2013Q1

REPORT INFORMATION
  Report Type: Report from Study
  Country: US (occurrence: US)
  Receive Date: 20130130
  Receipt Date: 20130130
  Transmission Date: 20140127
  Serious: No
  Sender: FDA-Public Use
  Company Number: US-ABBOTT-12P-163-0981760-00

PATIENT
  Age: 44 Year
  Sex: Female

DRUGS (7)
  1. HUMIRA [Suspect]
     Indication: RHEUMATOID ARTHRITIS
     Dates: start: 201111
  2. METHOTREXATE [Concomitant]
     Indication: RHEUMATOID ARTHRITIS
     Dosage: 2.5MG 6 TABLETS WEEKLY
     Route: 048
  3. FOLIC ACID [Concomitant]
     Indication: RHEUMATOID ARTHRITIS
     Dosage: 1MG 2 TABLET DAILY
     Route: 048
  4. ALLOPURINOL [Concomitant]
     Indication: GOUT
     Dosage: 100MG 2 TABLETS DAILY
  5. ASPIRIN [Concomitant]
     Indication: PROPHYLAXIS
     Dosage: 81MG DAILY
     Route: 048
  6. GENERIC FLONASE [Concomitant]
     Indication: SINUS CONGESTION
     Dosage: ONE TO TWO SPRAYS EACH NOSTRIL
  7. GENERIC FLONASE [Concomitant]
     Indication: HYPERSENSITIVITY

REACTIONS (1)
  - Drug dose omission [Recovered/Resolved]
